FAERS Safety Report 8439889-8 (Version None)
Quarter: 2012Q2

REPORT INFORMATION
  Report Type: 
  Country: None (occurrence: None)
  Receive Date: 20120611
  Receipt Date: 20120611
  Transmission Date: 20120825
  Serious: Yes (Life-Threatening, Other)
  Sender: FDA-Public Use
  Company Number: None

PATIENT
  Sex: Male
  Weight: 57.1532 kg

DRUGS (1)
  1. DOXYCYCLINE [Suspect]
     Indication: ACNE
     Dosage: 100 MG, TWICE DAILY, PO
     Route: 048
     Dates: start: 20120308, end: 20120603

REACTIONS (7)
  - FALL [None]
  - HYPOGLYCAEMIA [None]
  - LOSS OF CONSCIOUSNESS [None]
  - PULSE PRESSURE DECREASED [None]
  - RASH [None]
  - HEAD INJURY [None]
  - CONVULSION [None]
